FAERS Safety Report 16766535 (Version 1)
Quarter: 2019Q3

REPORT INFORMATION
  Report Type: Spontaneous
  Country: US (occurrence: US)
  Receive Date: 20190903
  Receipt Date: 20190903
  Transmission Date: 20191005
  Serious: No
  Sender: FDA-Public Use
  Company Number: US-PFIZER INC-2019364152

PATIENT
  Age: 54 Year
  Sex: Female
  Weight: 58.97 kg

DRUGS (7)
  1. PROGESTERONE. [Concomitant]
     Active Substance: PROGESTERONE
     Indication: HORMONE REPLACEMENT THERAPY
     Dosage: 150 MG, 1X/DAY (150MG CAPSULE TAKEN BY MOUTH ONCE NIGHTLY)
     Route: 048
     Dates: start: 201808
  2. ESTRADIOL. [Concomitant]
     Active Substance: ESTRADIOL
     Indication: MENOPAUSE
  3. CELEBREX [Suspect]
     Active Substance: CELECOXIB
     Indication: FIBROMYALGIA
     Dosage: 200 MG, 2X/DAY(200MG CAPSULE TAKEN BY MOUTH TWICE DAILY)
     Route: 048
  4. CELEBREX [Suspect]
     Active Substance: CELECOXIB
     Indication: SCOLIOSIS
  5. NALTREXONE [Concomitant]
     Active Substance: NALTREXONE
     Indication: FIBROMYALGIA
     Dosage: 4 MG, DAILY (4MG CAPSULE TAKEN BY MOUTH ONCE NIGHTLY)
     Route: 048
     Dates: start: 201808
  6. TESTOSTERONE. [Concomitant]
     Active Substance: TESTOSTERONE
     Indication: HORMONE REPLACEMENT THERAPY
     Dosage: 0.5 MG, 2X/DAY(0.5 GRAM TOPICAL CREAM APPLIED TO SKIN IN THE MORNING AND AT NIGHT DAILY)
     Route: 061
     Dates: start: 201808
  7. ESTRADIOL. [Concomitant]
     Active Substance: ESTRADIOL
     Indication: HYSTERECTOMY
     Dosage: 0.05 MG, 2X/WEEK (0.05MG TRANSDERMAL PATCH APPLIED TOPICALLY TO SKIN AFTER OLD PATCH REMOVED, DISCAR
     Route: 062
     Dates: start: 2013

REACTIONS (2)
  - Off label use [Unknown]
  - Drug effective for unapproved indication [Unknown]
